FAERS Safety Report 6416031-6 (Version None)
Quarter: 2009Q4

REPORT INFORMATION
  Report Type: 
  Country: None (occurrence: None)
  Receive Date: 20091023
  Receipt Date: 20091007
  Transmission Date: 20100525
  Serious: Yes (Hospitalization)
  Sender: FDA-Public Use
  Company Number: 1000007758

PATIENT
  Age: 84 Year
  Sex: Female
  Weight: 50 kg

DRUGS (12)
  1. MEMANTINE HCL [Suspect]
     Indication: DEMENTIA ALZHEIMER'S TYPE
     Dosage: 20 MG (20 MG, 1 IN 1 D), ORAL; 20 MG (20 MG, 1 IN 1 D), ORAL
     Route: 048
     Dates: start: 20050930, end: 20060327
  2. MEMANTINE HCL [Suspect]
     Indication: DEMENTIA ALZHEIMER'S TYPE
     Dosage: 20 MG (20 MG, 1 IN 1 D), ORAL; 20 MG (20 MG, 1 IN 1 D), ORAL
     Route: 048
     Dates: start: 20060401
  3. DONEPEZIL HYDROCHLORIDE (0.5 PERCENT) [Concomitant]
  4. FUROSEMIDE [Concomitant]
  5. ASPIRIN [Concomitant]
  6. DIGOXIN [Concomitant]
  7. MAGNESIUM OXIDE [Concomitant]
  8. AZULENE [Concomitant]
  9. SIMVASTATIN [Concomitant]
  10. FLUVOXAMINE MALEATE [Concomitant]
  11. VALSARTAN [Concomitant]
  12. GLYCERIN [Concomitant]

REACTIONS (10)
  - CALCULUS URETERIC [None]
  - HAEMATURIA [None]
  - HYDRONEPHROSIS [None]
  - HYPOPHAGIA [None]
  - KIDNEY ENLARGEMENT [None]
  - KIDNEY INFECTION [None]
  - MUSCULOSKELETAL STIFFNESS [None]
  - NAUSEA [None]
  - RHINORRHOEA [None]
  - VOMITING [None]
